FAERS Safety Report 21796264 (Version 1)
Quarter: 2022Q4

REPORT INFORMATION
  Report Type: Spontaneous
  Country: IT (occurrence: IT)
  Receive Date: 20221229
  Receipt Date: 20221229
  Transmission Date: 20230113
  Serious: Yes (Other)
  Sender: FDA-Public Use
  Company Number: None

PATIENT
  Age: 73 Year
  Sex: Male
  Weight: 100 kg

DRUGS (9)
  1. DAPTOMYCIN [Suspect]
     Active Substance: DAPTOMYCIN
     Indication: Culture positive
     Dosage: 700 MILLIGRAM
     Route: 042
     Dates: start: 20221024, end: 20221121
  2. PIPERACILLIN SODIUM\TAZOBACTAM SODIUM [Suspect]
     Active Substance: PIPERACILLIN SODIUM\TAZOBACTAM SODIUM
     Indication: Culture positive
     Dosage: FROM 6/OCT/2022 TO 20/OCT/2022 18 GRAMS PER DAY FROM 20/OCT/2022 TO 24/OCT/2022 9 GRAMS PER DAY FROM
     Route: 042
     Dates: start: 20211006, end: 20221121
  3. LINEZOLID [Suspect]
     Active Substance: LINEZOLID
     Indication: Culture positive
     Dosage: 600 MILLIGRAM, 12 HOURS
     Route: 048
     Dates: start: 20221006, end: 20221020
  4. HEPARIN CALCIUM [Suspect]
     Active Substance: HEPARIN CALCIUM
     Indication: Renal failure
     Dosage: 5000 IU/ML, 8 HOURS
     Route: 058
     Dates: start: 20221030, end: 20221104
  5. BENSERAZIDE\LEVODOPA [Concomitant]
     Active Substance: BENSERAZIDE\LEVODOPA
     Dosage: 100/25 MG ONE TABLET FOR 3 DAYS ORALLY
  6. SILODOSIN [Concomitant]
     Active Substance: SILODOSIN
     Dosage: 1 TABLET A DAY
  7. AMIODARONE [Concomitant]
     Active Substance: AMIODARONE
     Dosage: 200 MILLIGRAM, QD
     Route: 048
  8. PRODUXEN [Concomitant]
     Dosage: 1 TABLET A DAY
  9. DULOXETINE HYDROCHLORIDE [Concomitant]
     Active Substance: DULOXETINE HYDROCHLORIDE
     Dosage: 1 TABLET DAY

REACTIONS (2)
  - Skin exfoliation [Not Recovered/Not Resolved]
  - Chronic kidney disease [Not Recovered/Not Resolved]

NARRATIVE: CASE EVENT DATE: 20221027
